FAERS Safety Report 18131365 (Version 1)
Quarter: 2020Q3

REPORT INFORMATION
  Report Type: Spontaneous
  Country: IN (occurrence: IN)
  Receive Date: 20200810
  Receipt Date: 20200810
  Transmission Date: 20201103
  Serious: Yes (Hospitalization, Other)
  Sender: FDA-Public Use
  Company Number: IN-CASPER PHARMA LLC-2020CAS000396

PATIENT
  Age: 20 Year
  Sex: Male

DRUGS (2)
  1. PENICILLIN G BENZATHINE [Suspect]
     Active Substance: PENICILLIN G BENZATHINE
     Indication: CARDIOVASCULAR EVENT PROPHYLAXIS
     Dosage: 1.2 MILLION UNITS, EVERY 21 DAYS
     Route: 030
     Dates: start: 2006
  2. SULPHASALAZINE [Concomitant]
     Active Substance: SULFASALAZINE
     Indication: ANKYLOSING SPONDYLITIS
     Dosage: UNK UNKNOWN
     Route: 065

REACTIONS (2)
  - Myelitis transverse [Recovering/Resolving]
  - Embolia cutis medicamentosa [Recovering/Resolving]
